FAERS Safety Report 9283164 (Version 1)
Quarter: 2013Q2

REPORT INFORMATION
  Report Type: Spontaneous
  Country: US (occurrence: US)
  Receive Date: 20130510
  Receipt Date: 20130510
  Transmission Date: 20140414
  Serious: No
  Sender: FDA-Public Use
  Company Number: US-GLAXOSMITHKLINE-A0983810A

PATIENT
  Age: 27 Year
  Sex: Female
  Weight: 63.6 kg

DRUGS (10)
  1. TYKERB [Suspect]
     Indication: BREAST CANCER
     Dosage: 1000MG IN THE MORNING
     Route: 048
  2. XELODA [Concomitant]
     Indication: BREAST CANCER
     Dosage: 500MG UNKNOWN
     Route: 048
  3. DECADRON [Concomitant]
     Dosage: .5MG UNKNOWN
     Route: 048
  4. EMEND [Concomitant]
     Route: 048
  5. ATIVAN [Concomitant]
     Dosage: 1MG UNKNOWN
     Route: 048
  6. PROCHLORPERAZINE [Concomitant]
     Dosage: 5MG UNKNOWN
     Route: 048
  7. ZOFRAN [Concomitant]
     Dosage: 4MG UNKNOWN
     Route: 048
  8. PRILOSEC [Concomitant]
     Dosage: 20MG UNKNOWN
     Route: 048
  9. VITAMIN D [Concomitant]
     Route: 048
  10. HERCEPTIN [Concomitant]

REACTIONS (6)
  - Fatigue [Unknown]
  - Decreased appetite [Unknown]
  - Diarrhoea [Unknown]
  - Weight decreased [Unknown]
  - Vomiting [Unknown]
  - Nail disorder [Unknown]
